FAERS Safety Report 4404357-7 (Version None)
Quarter: 2004Q3

REPORT INFORMATION
  Report Type: 
  Country: None (occurrence: None)
  Receive Date: 20040719
  Receipt Date: 20040706
  Transmission Date: 20050211
  Serious: Yes (Other)
  Sender: FDA-Public Use
  Company Number: DE-JNJFOC-20040701163

PATIENT
  Age: 63 Year
  Sex: Male

DRUGS (3)
  1. REMICADE [Suspect]
     Indication: ANKYLOSING SPONDYLITIS
     Dosage: 100 MG, INTRAVENOUS
     Route: 042
     Dates: start: 20030714, end: 20031208
  2. METOPROLOL (METOPROLOL) [Concomitant]
  3. TRIAMTEREN (TRIAMTEREN) [Concomitant]

REACTIONS (3)
  - BLOOD PRESSURE INCREASED [None]
  - CHILLS [None]
  - TACHYCARDIA [None]
